FAERS Safety Report 6813674-2 (Version None)
Quarter: 2010Q3

REPORT INFORMATION
  Report Type: 
  Country: None (occurrence: None)
  Receive Date: 20100701
  Receipt Date: 20100619
  Transmission Date: 20110219
  Serious: No
  Sender: FDA-Public Use
  Company Number: US-B.I. PHARMACEUTICALS,INC./RIDGEFIELD-2010-BP-06965BP

PATIENT
  Sex: Male

DRUGS (15)
  1. SPIRIVA [Suspect]
     Indication: CHRONIC OBSTRUCTIVE PULMONARY DISEASE
     Dosage: 18 MCG
     Route: 055
     Dates: start: 20100610, end: 20100619
  2. COLESTIPOL HYDROCHLORIDE [Concomitant]
     Indication: BLOOD CHOLESTEROL INCREASED
     Dates: start: 20090101
  3. POLY IRON [Concomitant]
     Indication: RENAL DISORDER
     Dates: start: 20040101
  4. OMEPRAZOLE [Concomitant]
     Indication: GASTROOESOPHAGEAL REFLUX DISEASE
     Dates: start: 20040101
  5. DOXAZOSIN MESYLATE [Concomitant]
     Indication: HYPERTENSION
     Dates: start: 20040101
  6. TEKTURNA [Concomitant]
     Indication: HYPERTENSION
     Dates: start: 20040101
  7. CALCITRIOL [Concomitant]
     Indication: RENAL DISORDER
     Dates: start: 20040101
  8. FUROSEMIDE [Concomitant]
     Indication: RENAL DISORDER
     Dates: start: 20040101
  9. METOLAZONE [Concomitant]
     Indication: HYPERTENSION
  10. TAMSULOSIN HCL [Concomitant]
     Indication: RENAL DISORDER
     Dates: start: 20040101
  11. GABAPENTIN [Concomitant]
     Indication: NEUROPATHY PERIPHERAL
     Dates: start: 20040101
  12. LISINOPRIL [Concomitant]
     Indication: HYPERTENSION
     Dates: start: 20040101
  13. CALCIUM CARBONATE [Concomitant]
     Indication: BONE DISORDER
     Dates: start: 20040101
  14. ASPIRIN [Concomitant]
     Indication: ROUTINE HEALTH MAINTENANCE
     Dates: start: 20040101
  15. VITAMIN D [Concomitant]
     Indication: BONE DISORDER
     Dates: start: 20040101

REACTIONS (2)
  - MOUTH BREATHING [None]
  - NASAL CONGESTION [None]
